FAERS Safety Report 17756811 (Version 2)
Quarter: 2020Q2

REPORT INFORMATION
  Report Type: Spontaneous
  Country: DE (occurrence: DE)
  Receive Date: 20200507
  Receipt Date: 20200513
  Transmission Date: 20200714
  Serious: Yes (Other)
  Sender: FDA-Public Use
  Company Number: DE-EISAI MEDICAL RESEARCH-EC-2020-071308

PATIENT
  Age: 23 Year
  Sex: Male

DRUGS (5)
  1. BRIVARACETAM [Concomitant]
     Active Substance: BRIVARACETAM
     Indication: EPILEPSY
     Dosage: FREQUENCY UNKNOWN
     Route: 065
     Dates: start: 20190909
  2. FYCOMPA [Suspect]
     Active Substance: PERAMPANEL
     Indication: EPILEPSY
     Route: 048
     Dates: start: 20190909
  3. FYCOMPA [Suspect]
     Active Substance: PERAMPANEL
  4. VALPROATE [Concomitant]
     Active Substance: VALPROIC ACID
     Indication: EPILEPSY
     Dosage: FREQUENCY UNKNOWN
     Route: 065
     Dates: start: 20190909
  5. FYCOMPA [Suspect]
     Active Substance: PERAMPANEL
     Dosage: TITRATED UP TO 10 MG DAILY (2 MG IN AM, 2 MG IN AFTERNOON, 6 MG IN EVENING)
     Route: 048

REACTIONS (2)
  - Product use issue [Recovering/Resolving]
  - Physical assault [Recovering/Resolving]
